FAERS Safety Report 20432847 (Version 2)
Quarter: 2022Q1

REPORT INFORMATION
  Report Type: Spontaneous
  Country: JP (occurrence: JP)
  Receive Date: 20220205
  Receipt Date: 20220211
  Transmission Date: 20220423
  Serious: Yes (Hospitalization, Other)
  Sender: FDA-Public Use
  Company Number: JP-ONO-2022JP002438

PATIENT
  Age: 69 Year
  Sex: Female
  Weight: 49.1 kg

DRUGS (1)
  1. OPDIVO [Suspect]
     Active Substance: NIVOLUMAB
     Indication: Oesophageal carcinoma
     Dosage: 240 MILLIGRAM
     Route: 041
     Dates: start: 20220107

REACTIONS (1)
  - Bronchostenosis [Not Recovered/Not Resolved]

NARRATIVE: CASE EVENT DATE: 20220127
